FAERS Safety Report 25469601 (Version 1)
Quarter: 2025Q2

REPORT INFORMATION
  Report Type: Spontaneous
  Country: HK (occurrence: HK)
  Receive Date: 20250623
  Receipt Date: 20250623
  Transmission Date: 20250717
  Serious: Yes (Death, Other)
  Sender: DAIICHI
  Company Number: HK-DSJP-DS-2025-148181-HK

PATIENT
  Sex: Male

DRUGS (2)
  1. TRASTUZUMAB DERUXTECAN [Suspect]
     Active Substance: TRASTUZUMAB DERUXTECAN
     Indication: HER2 positive bladder cancer
     Dosage: 200 MG, ONCE EVERY 3 WK
     Route: 065
  2. TRASTUZUMAB DERUXTECAN [Suspect]
     Active Substance: TRASTUZUMAB DERUXTECAN
     Indication: Off label use
     Dosage: 200 MG, ONCE EVERY 3 WK
     Route: 065

REACTIONS (5)
  - Death [Fatal]
  - Pneumonia staphylococcal [Unknown]
  - Urinary tract infection [Unknown]
  - Sepsis [Unknown]
  - Off label use [Unknown]
